FAERS Safety Report 18992275 (Version 1)
Quarter: 2021Q1

REPORT INFORMATION
  Report Type: Spontaneous
  Country: US (occurrence: US)
  Receive Date: 20210310
  Receipt Date: 20210310
  Transmission Date: 20210420
  Serious: Yes (Hospitalization)
  Sender: FDA-Public Use
  Company Number: None

PATIENT
  Age: 55 Year
  Sex: Male

DRUGS (1)
  1. GRANIX [Suspect]
     Active Substance: TBO-FILGRASTIM

REACTIONS (4)
  - Memory impairment [None]
  - Illness [None]
  - Cerebral haemorrhage [None]
  - Pyrexia [None]
